FAERS Safety Report 12931515 (Version 4)
Quarter: 2017Q1

REPORT INFORMATION
  Report Type: Spontaneous
  Country: US (occurrence: US)
  Receive Date: 20161110
  Receipt Date: 20170120
  Transmission Date: 20170428
  Serious: Yes (Hospitalization, Other)
  Sender: FDA-Public Use
  Company Number: US-ALLERGAN-1675459US

PATIENT
  Age: 64 Year
  Sex: Female
  Weight: 97.51 kg

DRUGS (4)
  1. BOTOX [Suspect]
     Active Substance: ONABOTULINUMTOXINA
     Indication: ABDOMINAL RIGIDITY
     Dosage: UNK, SINGLE
     Route: 030
     Dates: start: 2013, end: 2013
  2. VITAMIN B1 [Concomitant]
     Active Substance: THIAMINE HYDROCHLORIDE
     Indication: SUPPLEMENTATION THERAPY
     Dosage: UNK, QD
     Route: 048
  3. VITAMIN B12 [Concomitant]
     Active Substance: CYANOCOBALAMIN
     Indication: SUPPLEMENTATION THERAPY
     Dosage: UNK, PRN
  4. STRATTERA [Concomitant]
     Active Substance: ATOMOXETINE HYDROCHLORIDE
     Indication: PRODUCT USED FOR UNKNOWN INDICATION
     Route: 065

REACTIONS (25)
  - Hemiparesis [Unknown]
  - Weight increased [Not Recovered/Not Resolved]
  - Visual impairment [Unknown]
  - Kidney infection [Unknown]
  - Pain [Not Recovered/Not Resolved]
  - Escherichia infection [Unknown]
  - Limb malformation [Unknown]
  - Transient ischaemic attack [Recovered/Resolved]
  - Hypoaesthesia [Unknown]
  - Seizure [Recovered/Resolved]
  - Amnesia [Not Recovered/Not Resolved]
  - Off label use [Unknown]
  - Ear pain [Unknown]
  - Abnormal behaviour [Unknown]
  - Tremor [Unknown]
  - Road traffic accident [Recovered/Resolved]
  - Urticaria [Unknown]
  - Hemiplegia [Unknown]
  - Cystitis [Unknown]
  - Eye movement disorder [Unknown]
  - Personality change [Unknown]
  - Increased appetite [Unknown]
  - Tooth loss [Unknown]
  - Feeling abnormal [Not Recovered/Not Resolved]
  - Vision blurred [Unknown]

NARRATIVE: CASE EVENT DATE: 201612
